FAERS Safety Report 4945393-1 (Version None)
Quarter: 2006Q1

REPORT INFORMATION
  Report Type: 
  Country: None (occurrence: None)
  Receive Date: 20060316
  Receipt Date: 20051130
  Transmission Date: 20060701
  Serious: Yes (Other)
  Sender: FDA-Public Use
  Company Number: US-BRISTOL-MYERS SQUIBB COMPANY-13200720

PATIENT
  Age: 66 Year
  Sex: Male
  Weight: 96 kg

DRUGS (6)
  1. TEQUIN [Suspect]
     Dates: start: 20030308
  2. CIPROFLOXACIN HCL [Suspect]
     Dosage: INITIATED ON THE FOLLOWING DATES: 02-MAY-1996, 30-OCT-1999, 01-APR-2004 AND 03-MAR-2005.
     Dates: start: 19960502
  3. CIPRO [Suspect]
     Dosage: INITIATED ON 30-OCT-1999 AND ALSO 03-MAR-2005
     Dates: start: 19991030, end: 20050101
  4. LEVAQUIN [Suspect]
     Dosage: INITIATED ON 28-DEC-2000 AND ALSO 05-FEB-2005
     Dates: start: 20001228
  5. MAXAQUIN [Suspect]
     Dates: start: 19950331
  6. AVELOX [Suspect]

REACTIONS (11)
  - AZOOSPERMIA [None]
  - BACK PAIN [None]
  - BLINDNESS UNILATERAL [None]
  - BLOOD CREATININE INCREASED [None]
  - ERECTILE DYSFUNCTION [None]
  - EYE PAIN [None]
  - HEPATOCELLULAR DAMAGE [None]
  - OCULAR HYPERAEMIA [None]
  - PAIN IN JAW [None]
  - SHOULDER PAIN [None]
  - VISUAL ACUITY REDUCED [None]
